FAERS Safety Report 18706562 (Version 3)
Quarter: 2021Q4

REPORT INFORMATION
  Report Type: Spontaneous
  Country: US (occurrence: US)
  Receive Date: 20210106
  Receipt Date: 20211119
  Transmission Date: 20220303
  Serious: No
  Sender: FDA-Public Use
  Company Number: US-PFIZER INC-2017500301

PATIENT
  Age: 86 Year
  Sex: Female

DRUGS (13)
  1. LYRICA [Suspect]
     Active Substance: PREGABALIN
     Indication: Neuropathy peripheral
     Dosage: 150 MG, 3X/DAY
     Route: 048
     Dates: start: 20171115
  2. LYRICA [Suspect]
     Active Substance: PREGABALIN
     Dosage: 150 MG, 3X/DAY
     Route: 048
     Dates: start: 20181210
  3. ACYCLOVIR [Concomitant]
     Active Substance: ACYCLOVIR
     Indication: Stomatitis
     Dosage: UNK UNK, 3X/DAY (AROUND MOUTH)
     Dates: start: 20151103
  4. FOLIC ACID [Concomitant]
     Active Substance: FOLIC ACID
     Dosage: 1 MG, 1X/DAY
     Route: 048
     Dates: start: 20160627
  5. GABAPENTIN [Concomitant]
     Active Substance: GABAPENTIN
     Dosage: 300 MG, UNK (FIVE TIMES DAILY FOR 90 DAYS)
     Route: 048
     Dates: start: 20170313
  6. LAMOTRIGINE [Concomitant]
     Active Substance: LAMOTRIGINE
     Dosage: 75 MG, DAILY (1(ONE) TABLET (ORAL) BY MOUTH IN THE AM AND 2 TABLETS AT NIGHT)
     Route: 048
     Dates: start: 20160301
  7. LEVOTHYROXINE SODIUM [Concomitant]
     Active Substance: LEVOTHYROXINE SODIUM
     Dosage: 75 UG, DAILY
     Route: 048
     Dates: start: 20171023
  8. OMEPRAZOLE [Concomitant]
     Active Substance: OMEPRAZOLE
     Dosage: 40 MG, DAILY
     Route: 048
     Dates: start: 20170417
  9. OXCARBAZEPINE [Concomitant]
     Active Substance: OXCARBAZEPINE
     Dosage: 150 MG, 2X/DAY
     Route: 048
     Dates: start: 20170605
  10. PAROXETINE HYDROCHLORIDE [Concomitant]
     Active Substance: PAROXETINE HYDROCHLORIDE
     Dosage: 30 MG, DAILY
     Route: 048
     Dates: start: 20170905
  11. PRAVASTATIN SODIUM [Concomitant]
     Active Substance: PRAVASTATIN SODIUM
     Dosage: 80 MG, DAILY
     Route: 048
     Dates: start: 20170829
  12. PREDNISONE [Concomitant]
     Active Substance: PREDNISONE
     Dosage: 10 MG, 1X/DAY (FOR THREE WEEKS)
     Route: 048
     Dates: start: 20171106
  13. PREDNISONE [Concomitant]
     Active Substance: PREDNISONE
     Dosage: 5 MG, UNK (ON WEEK 4)

REACTIONS (1)
  - Hypoacusis [Unknown]
